FAERS Safety Report 6626114-3 (Version None)
Quarter: 2010Q1

REPORT INFORMATION
  Report Type: 
  Country: None (occurrence: None)
  Receive Date: 20100310
  Receipt Date: 20100301
  Transmission Date: 20100710
  Serious: Yes (Hospitalization)
  Sender: FDA-Public Use
  Company Number: B0634977A

PATIENT
  Sex: Female
  Weight: 84.7 kg

DRUGS (9)
  1. LAPATINIB [Suspect]
     Indication: BREAST CANCER
     Dosage: 1500MG PER DAY
     Route: 048
     Dates: start: 20100119
  2. PACLITAXEL [Suspect]
     Indication: BREAST CANCER
     Dosage: 80MGM2 WEEKLY
     Route: 042
     Dates: start: 20100119
  3. DOCETAXEL [Suspect]
     Dosage: 75MGM2 EVERY 3 WEEKS
  4. ZOLPIDEM [Concomitant]
     Indication: DEPRESSION
     Dosage: 7.5MG AS REQUIRED
     Route: 048
     Dates: start: 20091228
  5. LORAZEPAM [Concomitant]
     Indication: DEPRESSION
     Dosage: 2.5MG AS REQUIRED
     Route: 048
     Dates: start: 20091204
  6. LYRICA [Concomitant]
     Dosage: 75MG AT NIGHT
  7. EMBOLEX [Concomitant]
  8. PARACETAMOL [Concomitant]
  9. DIPYRONE TAB [Concomitant]

REACTIONS (4)
  - DEHYDRATION [None]
  - GENERAL PHYSICAL HEALTH DETERIORATION [None]
  - POLYNEUROPATHY [None]
  - QUADRIPARESIS [None]
